FAERS Safety Report 11231454 (Version 1)
Quarter: 2015Q3

REPORT INFORMATION
  Report Type: Report from Study
  Country: TW (occurrence: TW)
  Receive Date: 20150701
  Receipt Date: 20150701
  Transmission Date: 20151125
  Serious: Yes (Hospitalization, Other)
  Sender: FDA-Public Use
  Company Number: TW-GLAXOSMITHKLINE-TW2015GSK094296

PATIENT

DRUGS (1)
  1. MELPHALAN [Suspect]
     Active Substance: MELPHALAN
     Indication: PRODUCT USED FOR UNKNOWN INDICATION
     Dosage: UNK
     Route: 065

REACTIONS (5)
  - VIth nerve paralysis [Recovered/Resolved]
  - Toxicity to various agents [Recovered/Resolved]
  - Febrile neutropenia [Recovered/Resolved]
  - IIIrd nerve paralysis [Recovered/Resolved]
  - Pancytopenia [Recovered/Resolved]
